FAERS Safety Report 6048663-1 (Version None)
Quarter: 2009Q1

REPORT INFORMATION
  Report Type: 
  Country: None (occurrence: None)
  Receive Date: 20090123
  Receipt Date: 20090113
  Transmission Date: 20090719
  Serious: Yes (Other)
  Sender: FDA-Public Use
  Company Number: US-WYE-H07715409

PATIENT
  Sex: Female

DRUGS (3)
  1. PREMARIN [Suspect]
  2. ESTRACE [Suspect]
  3. PROMETRIUM [Suspect]

REACTIONS (1)
  - BREAST CANCER METASTATIC [None]
